FAERS Safety Report 17255296 (Version 1)
Quarter: 2020Q1

REPORT INFORMATION
  Report Type: Spontaneous
  Country: CA (occurrence: CA)
  Receive Date: 20200110
  Receipt Date: 20200110
  Transmission Date: 20200409
  Serious: Yes (Other)
  Sender: FDA-Public Use
  Company Number: CA-ROCHE-2513017

PATIENT
  Age: 42 Year
  Sex: Female
  Weight: 81 kg

DRUGS (17)
  1. METHOTREXATE. [Suspect]
     Active Substance: METHOTREXATE
     Indication: PRODUCT USED FOR UNKNOWN INDICATION
     Route: 065
  2. VENTOLIN [Concomitant]
     Active Substance: ALBUTEROL SULFATE
  3. CETIRIZINE [Concomitant]
     Active Substance: CETIRIZINE HYDROCHLORIDE
  4. ENBREL [Suspect]
     Active Substance: ETANERCEPT
     Indication: RHEUMATOID ARTHRITIS
     Route: 065
  5. ORENCIA [Suspect]
     Active Substance: ABATACEPT
     Indication: PRODUCT USED FOR UNKNOWN INDICATION
     Route: 065
  6. ACTEMRA [Suspect]
     Active Substance: TOCILIZUMAB
     Indication: PRODUCT USED FOR UNKNOWN INDICATION
     Route: 065
  7. ZOPICLONE [Concomitant]
     Active Substance: ZOPICLONE
  8. ARAVA [Suspect]
     Active Substance: LEFLUNOMIDE
     Indication: PRODUCT USED FOR UNKNOWN INDICATION
     Route: 065
  9. CIMZIA [Suspect]
     Active Substance: CERTOLIZUMAB PEGOL
     Indication: RHEUMATOID ARTHRITIS
     Route: 058
  10. PERIOGARD [Suspect]
     Active Substance: CHLORHEXIDINE GLUCONATE
     Indication: PRODUCT USED FOR UNKNOWN INDICATION
     Route: 065
  11. TYLENOL [Concomitant]
     Active Substance: ACETAMINOPHEN
  12. PANTOPRAZOLE [Concomitant]
     Active Substance: PANTOPRAZOLE
  13. IBUPROFEN. [Concomitant]
     Active Substance: IBUPROFEN
  14. HYDROXYCHLOROQUINE [Concomitant]
     Active Substance: HYDROXYCHLOROQUINE
  15. SIMPONI [Suspect]
     Active Substance: GOLIMUMAB
     Indication: PRODUCT USED FOR UNKNOWN INDICATION
     Route: 065
  16. VITAMIN C [Concomitant]
     Active Substance: ASCORBIC ACID
  17. PREDNISONE. [Concomitant]
     Active Substance: PREDNISONE

REACTIONS (20)
  - Lower respiratory tract infection [Unknown]
  - Rash [Unknown]
  - Urticaria [Unknown]
  - Abdominal pain upper [Unknown]
  - Diarrhoea [Unknown]
  - Insomnia [Unknown]
  - Respiratory disorder [Unknown]
  - Muscle spasticity [Unknown]
  - Sinusitis [Unknown]
  - Body temperature increased [Unknown]
  - Peripheral swelling [Unknown]
  - Back pain [Unknown]
  - Headache [Unknown]
  - Pruritus [Unknown]
  - Pain [Unknown]
  - Asthenia [Unknown]
  - Ear pain [Unknown]
  - Joint swelling [Unknown]
  - Night sweats [Unknown]
  - Vomiting [Unknown]
